FAERS Safety Report 4931528-3 (Version None)
Quarter: 2006Q1

REPORT INFORMATION
  Report Type: 
  Country: None (occurrence: None)
  Receive Date: 20060303
  Receipt Date: 20060109
  Transmission Date: 20060701
  Serious: Yes (Hospitalization)
  Sender: FDA-Public Use
  Company Number: KR-ABBOTT-06P-090-0321606-00

PATIENT
  Age: 6 Year
  Sex: Female

DRUGS (4)
  1. VALPROATE SODIUM [Suspect]
     Indication: CONVULSION
     Route: 048
  2. VALPROATE SODIUM [Suspect]
  3. VALPROATE SODIUM [Suspect]
  4. CLONAZEPAM [Concomitant]
     Indication: CONVULSION
     Route: 048

REACTIONS (3)
  - BLOOD LACTATE DEHYDROGENASE INCREASED [None]
  - EVAN'S SYNDROME [None]
  - UPPER RESPIRATORY TRACT INFECTION [None]
